FAERS Safety Report 6194122-5 (Version None)
Quarter: 2009Q2

REPORT INFORMATION
  Report Type: 
  Country: None (occurrence: None)
  Receive Date: 20090518
  Receipt Date: 20090507
  Transmission Date: 20091009
  Serious: Yes (Hospitalization, Other)
  Sender: FDA-Public Use
  Company Number: PHHY2009NL17588

PATIENT
  Sex: Female

DRUGS (2)
  1. TERBINAFINE HCL [Suspect]
     Indication: FUNGAL INFECTION
  2. ZOLOFT [Suspect]
     Dosage: UNK
     Dates: start: 20030101

REACTIONS (5)
  - HYPERVENTILATION [None]
  - MANIA [None]
  - MUSCULAR WEAKNESS [None]
  - PALPITATIONS [None]
  - PRESYNCOPE [None]
